FAERS Safety Report 7867390-9 (Version None)
Quarter: 2011Q4

REPORT INFORMATION
  Report Type: 
  Country: None (occurrence: None)
  Receive Date: 20111028
  Receipt Date: 20111019
  Transmission Date: 20120403
  Serious: Yes (Other)
  Sender: FDA-Public Use
  Company Number: JP-MERCK-1110USA03352

PATIENT
  Age: 67 Year
  Sex: Female

DRUGS (2)
  1. FOSAMAX [Suspect]
     Route: 048
  2. PREDNISOLONE [Concomitant]
     Route: 048

REACTIONS (5)
  - OSTEONECROSIS [None]
  - ULCER [None]
  - FISTULA [None]
  - INJURY [None]
  - SUBCUTANEOUS HAEMATOMA [None]
